FAERS Safety Report 20775818 (Version 3)
Quarter: 2025Q3

REPORT INFORMATION
  Report Type: Report from Study
  Country: US (occurrence: US)
  Receive Date: 20220502
  Receipt Date: 20250805
  Transmission Date: 20251020
  Serious: Yes (Other)
  Sender: TAKEDA
  Company Number: US-TAKEDA-2021TUS048518

PATIENT
  Sex: Male

DRUGS (21)
  1. PONATINIB [Suspect]
     Active Substance: PONATINIB
     Indication: Chronic myeloid leukaemia
     Dosage: 15 MILLIGRAM, QD
     Dates: start: 202012
  2. PONATINIB [Suspect]
     Active Substance: PONATINIB
     Dosage: 10 MILLIGRAM, QD
  3. FISH OIL [Concomitant]
     Active Substance: FISH OIL
  4. VITAMIN D [Concomitant]
     Active Substance: VITAMIN D NOS
  5. DOXAZOSIN MESYLATE [Concomitant]
     Active Substance: DOXAZOSIN MESYLATE
  6. OMEPRAZOLE [Concomitant]
     Active Substance: OMEPRAZOLE
  7. TAMSULOSIN HYDROCHLORIDE [Concomitant]
     Active Substance: TAMSULOSIN HYDROCHLORIDE
  8. PRAVASTATIN SODIUM [Concomitant]
     Active Substance: PRAVASTATIN SODIUM
  9. PROCHLORPERAZINE MALEATE [Concomitant]
     Active Substance: PROCHLORPERAZINE MALEATE
  10. HYDROCODONE BITARTRATE AND GUAIFENESIN [Concomitant]
     Active Substance: GUAIFENESIN\HYDROCODONE BITARTRATE
  11. DOXEPIN HYDROCHLORIDE [Concomitant]
     Active Substance: DOXEPIN HYDROCHLORIDE
  12. ROSUVASTATIN CALCIUM [Concomitant]
     Active Substance: ROSUVASTATIN CALCIUM
  13. LISINOPRIL [Concomitant]
     Active Substance: LISINOPRIL
  14. ASPIRIN [Concomitant]
     Active Substance: ASPIRIN
  15. METOPROLOL TARTRATE [Concomitant]
     Active Substance: METOPROLOL TARTRATE
  16. LEVOTHYROXINE SODIUM [Concomitant]
     Active Substance: LEVOTHYROXINE SODIUM
  17. MAGNESIUM [Concomitant]
     Active Substance: MAGNESIUM
  18. GABAPENTIN [Concomitant]
     Active Substance: GABAPENTIN
  19. VITAMIN B12 [Concomitant]
     Active Substance: CYANOCOBALAMIN
  20. CLOPIDOGREL [Concomitant]
     Active Substance: CLOPIDOGREL BISULFATE
  21. PREDNISONE [Concomitant]
     Active Substance: PREDNISONE

REACTIONS (8)
  - Muscle rupture [Unknown]
  - Memory impairment [Unknown]
  - Muscle strain [Unknown]
  - Product dose omission issue [Unknown]
  - Fatigue [Unknown]
  - Neck pain [Unknown]
  - Muscle spasms [Unknown]
  - Constipation [Unknown]
